FAERS Safety Report 7982741-2 (Version None)
Quarter: 2011Q4

REPORT INFORMATION
  Report Type: 
  Country: None (occurrence: None)
  Receive Date: 20111215
  Receipt Date: 20111213
  Transmission Date: 20120403
  Serious: Yes (Other)
  Sender: FDA-Public Use
  Company Number: US-ROCHE-793689

PATIENT
  Sex: Female
  Weight: 62.652 kg

DRUGS (3)
  1. SOTRET [Suspect]
     Indication: PRODUCT USED FOR UNKNOWN INDICATION
     Dosage: 10MG TO 40 MG
     Route: 048
     Dates: start: 20080331
  2. ACCUTANE [Suspect]
     Indication: ACNE
     Route: 065
  3. ACCUTANE [Suspect]

REACTIONS (3)
  - IRRITABLE BOWEL SYNDROME [None]
  - LIP DRY [None]
  - INFLAMMATORY BOWEL DISEASE [None]
